FAERS Safety Report 15628609 (Version 2)
Quarter: 2018Q4

REPORT INFORMATION
  Report Type: Report from Study
  Country: DE (occurrence: DE)
  Receive Date: 20181116
  Receipt Date: 20181203
  Transmission Date: 20190205
  Serious: Yes (Other)
  Sender: FDA-Public Use
  Company Number: PHHY2018DE157084

PATIENT
  Sex: Female
  Weight: 78 kg

DRUGS (8)
  1. COSENTYX [Suspect]
     Active Substance: SECUKINUMAB
     Dosage: 300 MG PER APPLICATION
     Route: 065
     Dates: start: 20180911
  2. COSENTYX [Suspect]
     Active Substance: SECUKINUMAB
     Dosage: 300 MG PER APPLICATION
     Route: 065
     Dates: start: 20180918
  3. COSENTYX [Suspect]
     Active Substance: SECUKINUMAB
     Indication: PSORIATIC ARTHROPATHY
     Dosage: 300 MG PER APPLICATION
     Route: 065
     Dates: start: 20180814
  4. ASUMATE [Concomitant]
     Active Substance: ETHINYL ESTRADIOL\LEVONORGESTREL
     Indication: PRODUCT USED FOR UNKNOWN INDICATION
     Dosage: 30 OT, QD
     Route: 048
     Dates: start: 201811
  5. MTX [Concomitant]
     Active Substance: METHOTREXATE SODIUM
     Indication: PSORIATIC ARTHROPATHY
     Dosage: 17.5 MG, QW
     Route: 058
     Dates: start: 20180209, end: 20180826
  6. COSENTYX [Suspect]
     Active Substance: SECUKINUMAB
     Dosage: 300 MG PER APPLICATION
     Route: 065
     Dates: start: 20180828, end: 20180904
  7. FOLIC ACID. [Concomitant]
     Active Substance: FOLIC ACID
     Indication: PSORIATIC ARTHROPATHY
     Dosage: 5 MG, QW
     Route: 048
     Dates: start: 20180210, end: 20180827
  8. COSENTYX [Suspect]
     Active Substance: SECUKINUMAB
     Dosage: 300 MG PER APPLICATION
     Route: 065
     Dates: start: 20181016

REACTIONS (1)
  - Tonsillitis bacterial [Recovered/Resolved]

NARRATIVE: CASE EVENT DATE: 20180901
